FAERS Safety Report 9240992 (Version 1)
Quarter: 2013Q2

REPORT INFORMATION
  Report Type: Spontaneous
  Country: US (occurrence: None)
  Receive Date: 20130418
  Receipt Date: 20130418
  Transmission Date: 20140414
  Serious: Yes (Other)
  Sender: FDA-Public Use
  Company Number: None

PATIENT
  Age: 47 Year
  Sex: Female
  Weight: 65.77 kg

DRUGS (1)
  1. GENERIC ADDERALL XR [Suspect]
     Indication: ATTENTION DEFICIT/HYPERACTIVITY DISORDER
     Dosage: 30MG  BID  PO
     Route: 048
     Dates: start: 20130127, end: 20130321

REACTIONS (6)
  - Product substitution issue [None]
  - Thinking abnormal [None]
  - Memory impairment [None]
  - Disturbance in attention [None]
  - Decreased activity [None]
  - Mental impairment [None]
